FAERS Safety Report 5934665-X (Version None)
Quarter: 2008Q4

REPORT INFORMATION
  Report Type: 
  Country: None (occurrence: None)
  Receive Date: 20081029
  Receipt Date: 20080922
  Transmission Date: 20090506
  Serious: Yes (Hospitalization, Other)
  Sender: FDA-Public Use
  Company Number: JP-PFIZER INC-2008089399

PATIENT
  Age: 52 Year
  Sex: Male

DRUGS (2)
  1. METHYLPREDNISOLONE SODIUM SUCCINATE [Suspect]
     Indication: STEROID THERAPY
  2. PREDNISOLONE [Concomitant]

REACTIONS (1)
  - SMALL INTESTINAL PERFORATION [None]
